FAERS Safety Report 4890841-9 (Version None)
Quarter: 2006Q1

REPORT INFORMATION
  Report Type: 
  Country: None (occurrence: None)
  Receive Date: 20060123
  Receipt Date: 20060110
  Transmission Date: 20060701
  Serious: Yes (Other)
  Sender: FDA-Public Use
  Company Number: HQWYE307812JAN06

PATIENT
  Age: 42 Year
  Sex: Female
  Weight: 81.72 kg

DRUGS (4)
  1. PROTONIX [Suspect]
     Indication: GASTROOESOPHAGEAL REFLUX DISEASE
     Dosage: 40 MG 1X PER 1 TOT, ORAL
     Route: 048
     Dates: start: 20060110, end: 20060110
  2. SYNTHROID [Concomitant]
  3. ALTACE (RAMIPIRL) [Concomitant]
  4. AVANDAMET (ROSIGLITAZONE MALEATE/ METOFORMIN HYDROCHLORIDE) [Concomitant]

REACTIONS (7)
  - DRUG INTERACTION [None]
  - FLUSHING [None]
  - HEART RATE INCREASED [None]
  - HYPOAESTHESIA ORAL [None]
  - OCULAR HYPERAEMIA [None]
  - PARAESTHESIA [None]
  - PRURITUS GENERALISED [None]
